FAERS Safety Report 7147596-7 (Version None)
Quarter: 2010Q4

REPORT INFORMATION
  Report Type: 
  Country: None (occurrence: None)
  Receive Date: 20101209
  Receipt Date: 20101130
  Transmission Date: 20110411
  Serious: No
  Sender: FDA-Public Use
  Company Number: US-BIOGENIDEC-2010BI041624

PATIENT
  Sex: Female

DRUGS (3)
  1. TYSABRI [Suspect]
     Indication: MULTIPLE SCLEROSIS
     Route: 042
     Dates: start: 20100528
  2. AVONEX [Concomitant]
     Indication: MULTIPLE SCLEROSIS
     Route: 030
     Dates: start: 20061106
  3. AVONEX [Concomitant]
     Route: 030
     Dates: start: 19981201, end: 20060515

REACTIONS (3)
  - ARTHRALGIA [None]
  - INFUSION SITE HAEMORRHAGE [None]
  - NECK PAIN [None]
